FAERS Safety Report 11390188 (Version 1)
Quarter: 2015Q3

REPORT INFORMATION
  Report Type: Report from Study
  Country: US (occurrence: US)
  Receive Date: 20150818
  Receipt Date: 20150818
  Transmission Date: 20151125
  Serious: Yes (Hospitalization, Other)
  Sender: FDA-Public Use
  Company Number: US-AMGEN-USASL2015083473

PATIENT
  Age: 54 Year
  Sex: Male

DRUGS (1)
  1. ENBREL [Suspect]
     Active Substance: ETANERCEPT
     Indication: PRODUCT USED FOR UNKNOWN INDICATION
     Dosage: 50 MG, UNK
     Route: 065
     Dates: start: 2005

REACTIONS (7)
  - Cerebrovascular stenosis [Unknown]
  - Abasia [Unknown]
  - Cerebrovascular accident [Unknown]
  - Nasopharyngitis [Recovered/Resolved]
  - Decreased immune responsiveness [Not Recovered/Not Resolved]
  - Influenza [Unknown]
  - Aphasia [Unknown]

NARRATIVE: CASE EVENT DATE: 2014
